FAERS Safety Report 18270650 (Version 2)
Quarter: 2020Q4

REPORT INFORMATION
  Report Type: Spontaneous
  Country: US (occurrence: US)
  Receive Date: 20200915
  Receipt Date: 20201022
  Transmission Date: 20210113
  Serious: No
  Sender: FDA-Public Use
  Company Number: US-KALEO, INC.-2020KL000092

PATIENT
  Age: 10 Year
  Sex: Female

DRUGS (1)
  1. AUVI-Q [Suspect]
     Active Substance: EPINEPHRINE

REACTIONS (1)
  - Device leakage [Unknown]
